FAERS Safety Report 7933852-9 (Version None)
Quarter: 2011Q4

REPORT INFORMATION
  Report Type: 
  Country: None (occurrence: None)
  Receive Date: 20111122
  Receipt Date: 20111110
  Transmission Date: 20120403
  Serious: Yes (Hospitalization)
  Sender: FDA-Public Use
  Company Number: FR-ROCHE-1014269

PATIENT
  Sex: Female

DRUGS (2)
  1. HYDROCORTISONE [Concomitant]
     Dates: start: 20110101
  2. SOMATROPIN [Suspect]
     Indication: GROWTH HORMONE DEFICIENCY
     Dosage: SODE: 10MG/2 ML
     Route: 058
     Dates: start: 20060524

REACTIONS (1)
  - HYPONATRAEMIA [None]
